FAERS Safety Report 25847366 (Version 1)
Quarter: 2025Q3

REPORT INFORMATION
  Report Type: Spontaneous
  Country: US (occurrence: None)
  Receive Date: 20250923
  Receipt Date: 20250923
  Transmission Date: 20251021
  Serious: No
  Sender: FDA-CTU
  Company Number: None

PATIENT
  Sex: Male
  Weight: 68.4 kg

DRUGS (1)
  1. TERIPARATIDE [Suspect]
     Active Substance: TERIPARATIDE
     Indication: Senile osteoporosis
     Dosage: 20 UG DILY SUBCUTANEOUS
     Route: 058
     Dates: start: 20250701

REACTIONS (3)
  - Arthralgia [None]
  - Dyspnoea [None]
  - Therapy cessation [None]
